FAERS Safety Report 8365552-8 (Version None)
Quarter: 2012Q2

REPORT INFORMATION
  Report Type: 
  Country: None (occurrence: None)
  Receive Date: 20120516
  Receipt Date: 20120510
  Transmission Date: 20120825
  Serious: Yes (Hospitalization, Other)
  Sender: FDA-Public Use
  Company Number: PH-PFIZER INC-2012105552

PATIENT
  Age: 73 Year
  Sex: Male

DRUGS (4)
  1. CLINDAMYCIN HCL [Suspect]
     Indication: CELLULITIS
     Dosage: 300 MG, 4X/DAY
     Dates: start: 20120419
  2. OLMESARTAN MEDOXOMIL [Concomitant]
     Dosage: 10 MG, UNK
  3. NORVASC [Concomitant]
     Dosage: 5 MG, UNK
  4. GLIPIZIDE [Concomitant]
     Dosage: 10 MG, UNK

REACTIONS (2)
  - FACE OEDEMA [None]
  - HAEMOGLOBIN DECREASED [None]
